FAERS Safety Report 6919918-0 (Version None)
Quarter: 2010Q3

REPORT INFORMATION
  Report Type: 
  Country: None (occurrence: None)
  Receive Date: 20100811
  Receipt Date: 20100729
  Transmission Date: 20110219
  Serious: Yes (Hospitalization)
  Sender: FDA-Public Use
  Company Number: PHHY2010US34123

PATIENT
  Sex: Female
  Weight: 84.37 kg

DRUGS (1)
  1. EXJADE [Suspect]
     Indication: MYELODYSPLASTIC SYNDROME
     Dosage: 500 MG, BID
     Route: 048
     Dates: start: 20100112, end: 20100504

REACTIONS (1)
  - OSTEOMYELITIS CHRONIC [None]
